FAERS Safety Report 6545448-4 (Version None)
Quarter: 2010Q1

REPORT INFORMATION
  Report Type: 
  Country: None (occurrence: None)
  Receive Date: 20100121
  Receipt Date: 20100111
  Transmission Date: 20100710
  Serious: Yes (Hospitalization)
  Sender: FDA-Public Use
  Company Number: US-SANOFI-AVENTIS-2010SA002057

PATIENT
  Age: 83 Year
  Sex: Female
  Weight: 70.76 kg

DRUGS (5)
  1. LANTUS [Suspect]
     Dosage: DOSE:30 UNIT(S)
     Route: 058
  2. SOLOSTAR [Suspect]
     Dates: start: 20090601
  3. HUMALOG [Suspect]
     Dosage: SLIDING SCALE
     Route: 065
  4. COUMADIN [Concomitant]
     Dates: start: 20090601
  5. ALL OTHER THERAPEUTIC PRODUCTS [Concomitant]
     Dates: start: 20090601

REACTIONS (3)
  - BLOOD GLUCOSE INCREASED [None]
  - HEART RATE INCREASED [None]
  - INJECTION SITE HAEMATOMA [None]
